FAERS Safety Report 20679660 (Version 2)
Quarter: 2022Q2

REPORT INFORMATION
  Report Type: Report from Study
  Country: CA (occurrence: CA)
  Receive Date: 20220406
  Receipt Date: 20220518
  Transmission Date: 20220721
  Serious: Yes (Other)
  Sender: FDA-Public Use
  Company Number: CA-ABBVIE-22K-028-4345820-00

PATIENT
  Age: 68 Year
  Sex: Male

DRUGS (2)
  1. RINVOQ [Suspect]
     Active Substance: UPADACITINIB
     Indication: Psoriatic arthropathy
     Route: 048
     Dates: start: 20210724
  2. RINVOQ [Suspect]
     Active Substance: UPADACITINIB
     Indication: Psoriasis

REACTIONS (6)
  - Atrial fibrillation [Unknown]
  - Extrasystoles [Unknown]
  - Bradycardia [Unknown]
  - Heart rate increased [Unknown]
  - Cardiac failure congestive [Unknown]
  - Nausea [Recovered/Resolved]

NARRATIVE: CASE EVENT DATE: 20210701
